FAERS Safety Report 8383688-2 (Version None)
Quarter: 2012Q2

REPORT INFORMATION
  Report Type: 
  Country: None (occurrence: None)
  Receive Date: 20120524
  Receipt Date: 20120516
  Transmission Date: 20120825
  Serious: No
  Sender: FDA-Public Use
  Company Number: CHPA2012BR006514

PATIENT
  Age: 81 Year
  Sex: Female

DRUGS (2)
  1. ANTIHYPERTENSIVE DRUGS [Concomitant]
     Indication: HYPERTENSION
  2. LAMISIL [Suspect]
     Indication: FUNGAL INFECTION
     Dosage: 1 DF, QD
     Route: 061

REACTIONS (6)
  - SNEEZING [None]
  - FUNGAL INFECTION [None]
  - IRRITABILITY [None]
  - BLOOD PRESSURE INCREASED [None]
  - EXPIRED DRUG ADMINISTERED [None]
  - DISEASE RECURRENCE [None]
